FAERS Safety Report 12707686 (Version 3)
Quarter: 2016Q4

REPORT INFORMATION
  Report Type: Spontaneous
  Country: US (occurrence: US)
  Receive Date: 20160901
  Receipt Date: 20161018
  Transmission Date: 20170207
  Serious: No
  Sender: FDA-Public Use
  Company Number: US-PFIZER INC-2016410795

PATIENT
  Age: 56 Year
  Sex: Female

DRUGS (6)
  1. CRESTOR [Concomitant]
     Active Substance: ROSUVASTATIN CALCIUM
     Indication: BLOOD CHOLESTEROL INCREASED
     Dosage: 10 MG, 1X/DAY
     Dates: start: 20160524
  2. METHOTREXATE. [Concomitant]
     Active Substance: METHOTREXATE
     Dosage: 25 MG, WEEKLY, ^2.5 MG TABLET 10 OF THOSE ONCE A WEEK^
     Route: 048
  3. FUROSEMIDE. [Concomitant]
     Active Substance: FUROSEMIDE
     Indication: DIURETIC THERAPY
     Dosage: 20 MG, 1X/DAY
  4. METHOTREXATE. [Concomitant]
     Active Substance: METHOTREXATE
     Indication: PSORIATIC ARTHROPATHY
     Dosage: 7.5 MG, WEEKLY, ^SHE STARTED WITH 3 TABLETS A WEEK^
     Route: 048
     Dates: start: 201312
  5. LYRICA [Suspect]
     Active Substance: PREGABALIN
     Indication: FIBROMYALGIA
     Dosage: 225 MG, 2X/DAY
     Route: 048
     Dates: start: 201605
  6. VITAMIN B2 /00154901/ [Concomitant]
     Dosage: 50000 IU, WEEKLY
     Dates: start: 2014

REACTIONS (3)
  - Drug ineffective [Recovering/Resolving]
  - Blood pressure increased [Recovered/Resolved]
  - Stress [Recovering/Resolving]

NARRATIVE: CASE EVENT DATE: 201608
